FAERS Safety Report 8364884-7 (Version None)
Quarter: 2012Q2

REPORT INFORMATION
  Report Type: 
  Country: None (occurrence: None)
  Receive Date: 20120516
  Receipt Date: 20120509
  Transmission Date: 20120825
  Serious: Yes (Other)
  Sender: FDA-Public Use
  Company Number: US-BAYER-2012-045909

PATIENT
  Sex: Female

DRUGS (2)
  1. CARVEDILOL [Concomitant]
  2. BETAPACE [Suspect]
     Indication: ATRIAL FIBRILLATION
     Dosage: UNK
     Route: 048
     Dates: start: 20120309

REACTIONS (5)
  - OEDEMA PERIPHERAL [None]
  - INSOMNIA [None]
  - DIZZINESS [None]
  - HYPERTHYROIDISM [None]
  - ATRIAL FIBRILLATION [None]
